FAERS Safety Report 6736242 (Version 3)
Quarter: 2014Q2

REPORT INFORMATION
  Report Type: Spontaneous
  Country: US (occurrence: US)
  Receive Date: 20080825
  Receipt Date: 20140606
  Transmission Date: 20141212
  Serious: Yes (Other)
  Sender: FDA-Public Use
  Company Number: US-ASTRAZENECA-2004UW22382

PATIENT
  Age: 62 Year
  Sex: Male

DRUGS (4)
  1. IRESSA [Suspect]
     Indication: NON-SMALL CELL LUNG CANCER STAGE IV
     Route: 048
  2. IRESSA [Suspect]
     Indication: LUNG CANCER METASTATIC
     Route: 048
  3. IRESSA [Suspect]
     Indication: NON-SMALL CELL LUNG CANCER STAGE IV
     Route: 048
     Dates: start: 2014, end: 2014
  4. IRESSA [Suspect]
     Indication: LUNG CANCER METASTATIC
     Route: 048
     Dates: start: 2014, end: 2014

REACTIONS (5)
  - Bladder cancer [Unknown]
  - Infertility [Unknown]
  - Amnesia [Unknown]
  - Therapeutic response changed [Unknown]
  - Malaise [Recovering/Resolving]
